FAERS Safety Report 9019137 (Version 2)
Quarter: 2013Q1

REPORT INFORMATION
  Report Type: Report from Study
  Country: GB (occurrence: GB)
  Receive Date: 20130118
  Receipt Date: 20130208
  Transmission Date: 20140127
  Serious: Yes (Death)
  Sender: FDA-Public Use
  Company Number: GB-ABBOTT-13P-167-1036776-00

PATIENT
  Age: 58 None
  Sex: Male

DRUGS (1)
  1. HUMIRA [Suspect]
     Indication: RHEUMATOID ARTHRITIS
     Route: 058
     Dates: start: 20060315, end: 20061015

REACTIONS (3)
  - Myocardial ischaemia [Fatal]
  - Interstitial lung disease [Fatal]
  - Fibrosis [Fatal]
